FAERS Safety Report 7612246-X (Version None)
Quarter: 2011Q3

REPORT INFORMATION
  Report Type: 
  Country: None (occurrence: None)
  Receive Date: 20110715
  Receipt Date: 20110630
  Transmission Date: 20111222
  Serious: Yes (Other)
  Sender: FDA-Public Use
  Company Number: PHHY2011US58933

PATIENT
  Sex: Female

DRUGS (2)
  1. LISINOPRIL [Suspect]
  2. DIOVAN [Suspect]

REACTIONS (1)
  - ASTHMA [None]
